FAERS Safety Report 17199341 (Version 1)
Quarter: 2019Q4

REPORT INFORMATION
  Report Type: Spontaneous
  Country: JP (occurrence: JP)
  Receive Date: 20191226
  Receipt Date: 20191226
  Transmission Date: 20200122
  Serious: Yes (Hospitalization, Other)
  Sender: FDA-Public Use
  Company Number: JP-ROCHE-2503711

PATIENT
  Age: 65 Year
  Sex: Female
  Weight: 40 kg

DRUGS (4)
  1. ACTEMRA [Suspect]
     Active Substance: TOCILIZUMAB
     Route: 058
     Dates: start: 20190307
  2. METHYCOBAL [Concomitant]
     Active Substance: METHYLCOBALAMIN
     Dosage: DOSAGE IS UNCERTAIN.
     Route: 065
  3. LOXOPROFEN [Concomitant]
     Active Substance: LOXOPROFEN
     Dosage: DOSAGE IS UNCERTAIN.
     Route: 065
  4. ACTEMRA [Suspect]
     Active Substance: TOCILIZUMAB
     Indication: RHEUMATOID ARTHRITIS
     Route: 058
     Dates: start: 20171130

REACTIONS (6)
  - Staphylococcal sepsis [Not Recovered/Not Resolved]
  - Muscle abscess [Not Recovered/Not Resolved]
  - Extradural abscess [Unknown]
  - Intervertebral discitis [Unknown]
  - Pulmonary mass [Unknown]
  - Spondylitis [Unknown]

NARRATIVE: CASE EVENT DATE: 20191015
